FAERS Safety Report 7589816-0 (Version None)
Quarter: 2011Q2

REPORT INFORMATION
  Report Type: 
  Country: None (occurrence: None)
  Receive Date: 20110627
  Receipt Date: 20110617
  Transmission Date: 20111010
  Serious: Yes (Other)
  Sender: FDA-Public Use
  Company Number: JPI-P-015460

PATIENT
  Age: 36 Year
  Sex: Male

DRUGS (3)
  1. MODAFINIL [Concomitant]
  2. XYREM [Suspect]
     Indication: CATAPLEXY
     Dosage: 4.5 GM (2.25 GM,2 IN 1 D), ORAL
     Route: 048
     Dates: start: 20110512, end: 20110515
  3. VENLAFAXINE HYDROCHLORIDE [Concomitant]

REACTIONS (6)
  - SOMNOLENCE [None]
  - HEADACHE [None]
  - CONVULSION [None]
  - DYSPNOEA [None]
  - PARALYSIS [None]
  - SCREAMING [None]
